FAERS Safety Report 8238412-0 (Version None)
Quarter: 2012Q1

REPORT INFORMATION
  Report Type: 
  Country: None (occurrence: None)
  Receive Date: 20120326
  Receipt Date: 20120308
  Transmission Date: 20120608
  Serious: No
  Sender: FDA-Public Use
  Company Number: 2012SP015310

PATIENT
  Age: 51 Year
  Sex: Male
  Weight: 78.18 kg

DRUGS (5)
  1. SAPHRIS [Suspect]
     Indication: BIPOLAR II DISORDER
     Dosage: 5 MG;QD;SL
     Route: 060
     Dates: start: 20120223, end: 20120306
  2. DIVALPROEX SODIUM [Concomitant]
  3. LIPITOR [Concomitant]
  4. PRISTIQ [Concomitant]
  5. SEROQUEL XR [Concomitant]

REACTIONS (7)
  - BALANCE DISORDER [None]
  - MENTAL IMPAIRMENT [None]
  - SOMNOLENCE [None]
  - APATHY [None]
  - PRURITUS GENERALISED [None]
  - HEADACHE [None]
  - DIZZINESS [None]
